FAERS Safety Report 14477268 (Version 2)
Quarter: 2018Q3

REPORT INFORMATION
  Report Type: Report from Study
  Country: US (occurrence: US)
  Receive Date: 20180201
  Receipt Date: 20180723
  Transmission Date: 20181010
  Serious: No
  Sender: FDA-Public Use
  Company Number: US-EXELIXIS-CABO-17011085

PATIENT
  Age: 50 Year
  Sex: Female

DRUGS (2)
  1. CABOMETYX [Suspect]
     Active Substance: CABOZANTINIB S-MALATE
     Indication: RENAL CANCER
     Dosage: 40 MG, QD
     Route: 048
     Dates: start: 20171003
  2. CABOMETYX [Suspect]
     Active Substance: CABOZANTINIB S-MALATE
     Indication: NEOPLASM MALIGNANT

REACTIONS (7)
  - Neuropathy peripheral [Unknown]
  - Pain in extremity [Unknown]
  - Blister [Unknown]
  - Dry skin [Unknown]
  - Skin exfoliation [Unknown]
  - Flatulence [Unknown]
  - Weight decreased [Unknown]

NARRATIVE: CASE EVENT DATE: 20171016
